FAERS Safety Report 8909869 (Version 2)
Quarter: 2012Q4

REPORT INFORMATION
  Report Type: 
  Country: JP (occurrence: JP)
  Receive Date: 20121115
  Receipt Date: 20121214
  Transmission Date: 20130627
  Serious: Yes (Disabling, Other)
  Sender: FDA-Public Use
  Company Number: JP-ROCHE-1146291

PATIENT
  Age: 80 Year
  Sex: Female
  Weight: 47 kg

DRUGS (11)
  1. XELODA [Suspect]
     Indication: COLON CANCER RECURRENT
     Dosage: 2 weeks administration followed by 1 week rest
     Route: 048
     Dates: start: 20120905, end: 20120914
  2. ELPLAT [Concomitant]
     Indication: COLON CANCER RECURRENT
     Dosage: Dosage is uncertain.
     Route: 041
     Dates: start: 20120905, end: 20120905
  3. FUROSEMIDE [Concomitant]
     Indication: HYPERTENSION
     Dosage: Dosage is uncertain.
     Route: 065
  4. XALATAN [Concomitant]
     Dosage: Dosage is uncertain.
     Route: 047
  5. LIVALO [Concomitant]
     Indication: LIPIDS ABNORMAL
     Route: 048
  6. SELBEX [Concomitant]
     Route: 048
  7. DECADRON [Concomitant]
     Route: 048
     Dates: start: 20120905, end: 20120908
  8. PYDOXAL [Concomitant]
     Route: 048
     Dates: start: 20120905, end: 20120914
  9. HIRUDOID [Concomitant]
     Dosage: Dosage is uncertain.
     Route: 003
     Dates: start: 20120905
  10. ALOXI [Concomitant]
     Route: 042
     Dates: start: 20120905, end: 20120905
  11. FOSAPREPITANT MEGLUMINE [Concomitant]

REACTIONS (10)
  - Diarrhoea [Recovered/Resolved]
  - Dehydration [Unknown]
  - Cerebral infarction [Recovered/Resolved with Sequelae]
  - Aphagia [Recovered/Resolved]
  - Fluid intake reduced [Recovered/Resolved]
  - Arterial thrombosis [Unknown]
  - Vomiting [Recovered/Resolved]
  - Nausea [Unknown]
  - Pyrexia [Unknown]
  - Faeces discoloured [Recovered/Resolved]
